FAERS Safety Report 15754071 (Version 1)
Quarter: 2018Q4

REPORT INFORMATION
  Report Type: Spontaneous
  Country: US (occurrence: US)
  Receive Date: 20181223
  Receipt Date: 20181223
  Transmission Date: 20190205
  Serious: No
  Sender: FDA-Public Use
  Company Number: US-DRREDDYS-USA/USA/18/0105975

PATIENT
  Sex: Male

DRUGS (1)
  1. HABITROL [Suspect]
     Active Substance: NICOTINE
     Indication: SMOKING CESSATION THERAPY
     Dosage: HABITROL TRANSDERMAL NICOTINE REPLACEMENT PATCH STAGE 3(7MG)-DRL 14 CT
     Route: 062

REACTIONS (3)
  - Incorrect dose administered [Unknown]
  - Pain [Recovering/Resolving]
  - Insomnia [Recovering/Resolving]
